FAERS Safety Report 8458320-X (Version None)
Quarter: 2012Q2

REPORT INFORMATION
  Report Type: 
  Country: None (occurrence: None)
  Receive Date: 20120615
  Receipt Date: 20120603
  Transmission Date: 20120825
  Serious: Yes (Other)
  Sender: FDA-Public Use
  Company Number: GB-DEXPHARM-20120634

PATIENT
  Age: 78 Year
  Sex: Male

DRUGS (10)
  1. RANITIDINE [Concomitant]
  2. DICLOFENAC SODIUM [Suspect]
     Dates: start: 20120201
  3. OMEPRAZOLE [Suspect]
     Dates: start: 20120201
  4. ALBUTEROL SULATE [Concomitant]
  5. SIMVASTATIN [Concomitant]
  6. FELODIPINE [Concomitant]
  7. BENDROFLUMETHIAZIDE [Concomitant]
  8. VALSARTAN [Concomitant]
  9. NIFEDIPINE [Concomitant]
  10. QUININE SULFATE [Concomitant]

REACTIONS (2)
  - DIZZINESS [None]
  - PARAESTHESIA [None]
